FAERS Safety Report 18379610 (Version 2)
Quarter: 2020Q4

REPORT INFORMATION
  Report Type: Spontaneous
  Country: US (occurrence: US)
  Receive Date: 20201013
  Receipt Date: 20201030
  Transmission Date: 20210114
  Serious: No
  Sender: FDA-Public Use
  Company Number: US-CHARTWELL PHARMACOVIGILANCE, LLC.-2092740

PATIENT
  Sex: Female

DRUGS (1)
  1. CALCIUM ACETATE CAPSULES, 667 MG [Suspect]
     Active Substance: CALCIUM ACETATE
     Dates: start: 202002, end: 202007

REACTIONS (1)
  - Hyperphosphataemia [Recovered/Resolved]
